FAERS Safety Report 19227775 (Version 2)
Quarter: 2021Q2

REPORT INFORMATION
  Report Type: Report from Study
  Country: US (occurrence: US)
  Receive Date: 20210507
  Receipt Date: 20210514
  Transmission Date: 20210717
  Serious: Yes (Hospitalization)
  Sender: FDA-Public Use
  Company Number: US-ROCHE-2823720

PATIENT
  Age: 62 Year
  Sex: Male
  Weight: 110.78 kg

DRUGS (14)
  1. WARFARIN [Concomitant]
     Active Substance: WARFARIN
  2. TRELEGY ELLIPTA [Concomitant]
     Active Substance: FLUTICASONE FUROATE\UMECLIDINIUM BROMIDE\VILANTEROL TRIFENATATE
  3. VENTOLIN [Concomitant]
     Active Substance: ALBUTEROL SULFATE
  4. NICARDIPINE [Concomitant]
     Active Substance: NICARDIPINE
  5. PIRFENIDONE. [Suspect]
     Active Substance: PIRFENIDONE
     Indication: PNEUMOCONIOSIS
     Route: 048
     Dates: start: 20201130, end: 20210411
  6. SIMVASTATIN. [Concomitant]
     Active Substance: SIMVASTATIN
  7. BIVALIRUDIN. [Concomitant]
     Active Substance: BIVALIRUDIN
  8. NTG [Concomitant]
     Active Substance: NITROGLYCERIN
  9. ASA [Concomitant]
     Active Substance: ASPIRIN
  10. AMLODIPINE [Concomitant]
     Active Substance: AMLODIPINE BESYLATE
  11. CELEXA [Concomitant]
     Active Substance: CITALOPRAM HYDROBROMIDE
  12. LASIX [Concomitant]
     Active Substance: FUROSEMIDE
  13. PLAVIX [Concomitant]
     Active Substance: CLOPIDOGREL BISULFATE
  14. BRILINTA [Concomitant]
     Active Substance: TICAGRELOR

REACTIONS (1)
  - Acute myocardial infarction [Unknown]

NARRATIVE: CASE EVENT DATE: 20210424
